FAERS Safety Report 8616441-2 (Version None)
Quarter: 2012Q3

REPORT INFORMATION
  Report Type: 
  Country: None (occurrence: None)
  Receive Date: 20120823
  Receipt Date: 20120813
  Transmission Date: 20120928
  Serious: Yes (Death, Hospitalization)
  Sender: FDA-Public Use
  Company Number: US-OPTIMER-20120069

PATIENT
  Sex: Female
  Weight: 70.5 kg

DRUGS (4)
  1. DIFICID [Suspect]
     Indication: CLOSTRIDIUM DIFFICILE COLITIS
     Dosage: 200 MG, BID
     Route: 048
     Dates: start: 20120511, end: 20120501
  2. KEPPRA [Concomitant]
     Dosage: UNK
  3. PEPCID [Concomitant]
     Dosage: UNK
  4. ALBUMIN NOS [Concomitant]
     Dosage: UNK

REACTIONS (12)
  - HYPERAMMONAEMIA [None]
  - ENZYME ABNORMALITY [None]
  - MENTAL STATUS CHANGES [None]
  - ACUTE RESPIRATORY FAILURE [None]
  - URINARY TRACT INFECTION [None]
  - CARDIAC FAILURE CONGESTIVE [None]
  - MYOCLONUS [None]
  - EPILEPSY [None]
  - ENCEPHALOPATHY [None]
  - UNRESPONSIVE TO STIMULI [None]
  - LIVER FUNCTION TEST ABNORMAL [None]
  - OFF LABEL USE [None]
